FAERS Safety Report 5793254-0 (Version None)
Quarter: 2008Q2

REPORT INFORMATION
  Report Type: 
  Country: None (occurrence: None)
  Receive Date: 20080627
  Receipt Date: 20080623
  Transmission Date: 20081010
  Serious: Yes (Other)
  Sender: FDA-Public Use
  Company Number: GB-ASTRAZENECA-2008GB01168

PATIENT
  Age: 27 Year
  Sex: Male

DRUGS (3)
  1. QUETIAPINE FUMARATE [Suspect]
     Route: 048
  2. CLOZARIL [Suspect]
     Indication: SCHIZOPHRENIA
     Route: 065
     Dates: start: 20080319
  3. CLOZARIL [Suspect]
     Route: 065

REACTIONS (5)
  - BLOOD PRESSURE DIASTOLIC INCREASED [None]
  - COLD SWEAT [None]
  - HYPOTHERMIA [None]
  - MALAISE [None]
  - TACHYCARDIA [None]
